FAERS Safety Report 6511564-6 (Version None)
Quarter: 2009Q4

REPORT INFORMATION
  Report Type: 
  Country: None (occurrence: None)
  Receive Date: 20091222
  Receipt Date: 20090422
  Transmission Date: 20100525
  Serious: No
  Sender: FDA-Public Use
  Company Number: US-ASTRAZENECA-2009UW10068

PATIENT
  Age: 79 Year
  Sex: Female
  Weight: 63 kg

DRUGS (7)
  1. CRESTOR [Suspect]
     Indication: BLOOD CHOLESTEROL INCREASED
     Route: 048
  2. VASOTEC [Concomitant]
  3. PLAVIX [Concomitant]
  4. METFORMIN HCL [Concomitant]
  5. ALBUTEROL SULATE [Concomitant]
  6. FLOVENT [Concomitant]
  7. FOSAMAX [Concomitant]

REACTIONS (4)
  - FOOD ALLERGY [None]
  - NASAL CONGESTION [None]
  - RHINORRHOEA [None]
  - SNEEZING [None]
